FAERS Safety Report 21348205 (Version 1)
Quarter: 2022Q3

REPORT INFORMATION
  Report Type: Spontaneous
  Country: US (occurrence: US)
  Receive Date: 20220919
  Receipt Date: 20220919
  Transmission Date: 20221026
  Serious: No
  Sender: FDA-Public Use
  Company Number: US-AUROBINDO-AUR-APL-2022-008475

PATIENT
  Age: 61 Year
  Sex: Female
  Weight: 61.2 kg

DRUGS (1)
  1. DEXTROAMPHETAMINE SULFATE [Suspect]
     Active Substance: DEXTROAMPHETAMINE SULFATE
     Indication: Attention deficit hyperactivity disorder
     Dosage: 2 DOSAGE FORM, 3 TIMES A DAY
     Route: 065

REACTIONS (2)
  - Nontherapeutic agent urine positive [Unknown]
  - Reaction to excipient [Unknown]
